FAERS Safety Report 17323897 (Version 1)
Quarter: 2020Q1

REPORT INFORMATION
  Report Type: Spontaneous
  Country: GB (occurrence: GB)
  Receive Date: 20200127
  Receipt Date: 20200127
  Transmission Date: 20200409
  Serious: Yes (Other)
  Sender: FDA-Public Use
  Company Number: GB-TEVA-2020-GB-1173004

PATIENT
  Age: 38 Year
  Sex: Female
  Weight: 99 kg

DRUGS (4)
  1. GALPHARM FLU-MAX ALL IN ONE CHESTY COUGH AND COLD [Concomitant]
  2. PREDNISOLONE. [Suspect]
     Active Substance: PREDNISOLONE
     Indication: BRONCHIAL HYPERREACTIVITY
     Dosage: 20 MILLIGRAM DAILY; 20MG A DAY FOR ONE WEEK
     Route: 048
     Dates: start: 20191223, end: 20191230
  3. CERAZETTE [Concomitant]
  4. PREDNISOLONE. [Suspect]
     Active Substance: PREDNISOLONE
     Dosage: CURRENTLY 10MG A DAY
     Route: 048
     Dates: start: 20191231

REACTIONS (5)
  - Palpitations [Unknown]
  - Anxiety [Not Recovered/Not Resolved]
  - Insomnia [Unknown]
  - Dyspnoea [Unknown]
  - Throat tightness [Unknown]

NARRATIVE: CASE EVENT DATE: 20191227
